FAERS Safety Report 19447206 (Version 3)
Quarter: 2021Q3

REPORT INFORMATION
  Report Type: Spontaneous
  Country: US (occurrence: US)
  Receive Date: 20210622
  Receipt Date: 20210716
  Transmission Date: 20211014
  Serious: Yes (Other)
  Sender: FDA-Public Use
  Company Number: US-GLAXOSMITHKLINE-US2021131392

PATIENT
  Sex: Female

DRUGS (2)
  1. ZEJULA [Suspect]
     Active Substance: NIRAPARIB
     Dosage: 200 MG,QD
     Route: 048
  2. ZEJULA [Suspect]
     Active Substance: NIRAPARIB
     Indication: OVARIAN CANCER
     Dosage: 200 MG, QD
     Dates: start: 20210607

REACTIONS (7)
  - Fatigue [Unknown]
  - Abdominal discomfort [Unknown]
  - Neoplasm [Not Recovered/Not Resolved]
  - Ascites [Not Recovered/Not Resolved]
  - Constipation [Unknown]
  - Condition aggravated [Unknown]
  - Chest pain [Unknown]
